FAERS Safety Report 23661523 (Version 1)
Quarter: 2024Q1

REPORT INFORMATION
  Report Type: Spontaneous
  Country: FI (occurrence: FI)
  Receive Date: 20240322
  Receipt Date: 20240322
  Transmission Date: 20240410
  Serious: Yes (Hospitalization)
  Sender: FDA-Public Use
  Company Number: FI-AMGEN-FINSP2024054606

PATIENT
  Age: 69 Year
  Sex: Female

DRUGS (1)
  1. PROLIA [Suspect]
     Active Substance: DENOSUMAB
     Indication: Product used for unknown indication
     Dosage: UNK
     Route: 065

REACTIONS (8)
  - Blood sodium decreased [Unknown]
  - Blood glucose increased [Unknown]
  - Dysuria [Unknown]
  - Sinusitis [Unknown]
  - Pruritus [Recovering/Resolving]
  - Arthralgia [Unknown]
  - Alopecia [Unknown]
  - Pain in extremity [Unknown]
